FAERS Safety Report 7408608-6 (Version None)
Quarter: 2011Q2

REPORT INFORMATION
  Report Type: 
  Country: None (occurrence: None)
  Receive Date: 20110412
  Receipt Date: 20110329
  Transmission Date: 20111010
  Serious: Yes (Other)
  Sender: FDA-Public Use
  Company Number: PHHY2011US26018

PATIENT
  Sex: Female

DRUGS (2)
  1. TOPROL-XL [Concomitant]
     Dosage: 550 MG, UNK
  2. DIOVAN [Suspect]
     Dosage: 160 MG, QD

REACTIONS (3)
  - CHEST PAIN [None]
  - PAIN IN EXTREMITY [None]
  - MYOCARDIAL INFARCTION [None]
